FAERS Safety Report 5741294-X (Version None)
Quarter: 2008Q2

REPORT INFORMATION
  Report Type: 
  Country: None (occurrence: None)
  Receive Date: 20080514
  Receipt Date: 20080131
  Transmission Date: 20081010
  Serious: Yes (Other)
  Sender: FDA-Public Use
  Company Number: OPER20080014

PATIENT
  Age: 69 Year
  Sex: Female
  Weight: 90.7194 kg

DRUGS (3)
  1. OPANA ER [Suspect]
     Indication: BACK PAIN
     Dosage: 5 MG, 1 TABLET BID, PER ORAL
     Route: 048
     Dates: start: 20071129, end: 20071202
  2. OPANA [Suspect]
     Indication: BACK PAIN
     Dosage: 5 MG, 1-2 TABS BID, PER ORAL
     Route: 048
     Dates: start: 20071129, end: 20071205
  3. SYNTHROID [Suspect]
     Indication: HYPOTHYROIDISM
     Dosage: 1 TABLET DAILY, PER ORAL
     Route: 048
     Dates: start: 20071001

REACTIONS (3)
  - DRUG INEFFECTIVE [None]
  - INSOMNIA [None]
  - PSYCHOMOTOR HYPERACTIVITY [None]
